FAERS Safety Report 5695054-9 (Version None)
Quarter: 2008Q2

REPORT INFORMATION
  Report Type: 
  Country: None (occurrence: None)
  Receive Date: 20080404
  Receipt Date: 20080325
  Transmission Date: 20081010
  Serious: Yes (Other)
  Sender: FDA-Public Use
  Company Number: TW-PFIZER INC-2008023600

PATIENT
  Age: 57 Year
  Sex: Female

DRUGS (4)
  1. GABAPENTIN [Suspect]
     Indication: DYSAESTHESIA
  2. ACARBOSE [Concomitant]
  3. GLIMEPIRIDE [Concomitant]
  4. ROSIGLITAZONE [Concomitant]

REACTIONS (7)
  - ALTERED STATE OF CONSCIOUSNESS [None]
  - BLOOD PRESSURE INCREASED [None]
  - DIZZINESS [None]
  - DRUG TOXICITY [None]
  - LETHARGY [None]
  - SOMNOLENCE [None]
  - VOMITING [None]
